FAERS Safety Report 23463429 (Version 1)
Quarter: 2024Q1

REPORT INFORMATION
  Report Type: Report from Study
  Country: CA (occurrence: CA)
  Receive Date: 20240131
  Receipt Date: 20240131
  Transmission Date: 20240410
  Serious: Yes (Life-Threatening, Other)
  Sender: FDA-Public Use
  Company Number: CA-CELLTRION INC.-2023CA013155

PATIENT

DRUGS (2)
  1. INFLIXIMAB [Suspect]
     Active Substance: INFLIXIMAB
     Indication: Rheumatoid arthritis
     Dosage: REMSIMA 120 MG/ML DIRECT AUTO-INJECTOR
     Route: 058
  2. INFLIXIMAB [Suspect]
     Active Substance: INFLIXIMAB
     Dosage: REMSIMA 120 MG/ML DIRECT AUTO-INJECTOR, EVERY 2 WEEKS
     Route: 058
     Dates: start: 20230618, end: 20240114

REACTIONS (4)
  - Neoplasm malignant [Unknown]
  - Injection site pain [Recovered/Resolved]
  - Injectable contraception [Recovered/Resolved]
  - Product leakage [Recovered/Resolved]

NARRATIVE: CASE EVENT DATE: 20230618
